FAERS Safety Report 23916431 (Version 1)
Quarter: 2024Q2

REPORT INFORMATION
  Report Type: Spontaneous
  Country: US (occurrence: None)
  Receive Date: 20240528
  Receipt Date: 20240528
  Transmission Date: 20240716
  Serious: No
  Sender: FDA-Public Use
  Company Number: None

PATIENT
  Age: 57 Year
  Sex: Male
  Weight: 120 kg

DRUGS (1)
  1. OCTAGAM IMMUNE GLOBULIN (HUMAN) [Suspect]
     Active Substance: HUMAN IMMUNOGLOBULIN G
     Dosage: OTHER FREQUENCY : EVERY 10 DAYS;?
     Route: 042
     Dates: start: 20240528, end: 20240528

REACTIONS (4)
  - Infusion related reaction [None]
  - Therapy cessation [None]
  - Blood pressure increased [None]
  - Pyrexia [None]

NARRATIVE: CASE EVENT DATE: 20240528
